FAERS Safety Report 20680849 (Version 2)
Quarter: 2022Q4

REPORT INFORMATION
  Report Type: Report from Study
  Country: US (occurrence: US)
  Receive Date: 20220406
  Receipt Date: 20221017
  Transmission Date: 20230112
  Serious: Yes (Hospitalization)
  Sender: FDA-Public Use
  Company Number: US-TAKEDA-2022TUS021726

PATIENT
  Age: 82 Year
  Sex: Male

DRUGS (1)
  1. HUMAN IMMUNOGLOBULIN G [Suspect]
     Active Substance: HUMAN IMMUNOGLOBULIN G
     Indication: Primary immunodeficiency syndrome
     Dosage: UNK
     Route: 065
     Dates: start: 201912

REACTIONS (4)
  - Gait inability [Recovering/Resolving]
  - Muscular weakness [Recovering/Resolving]
  - Abdominal pain upper [Unknown]
  - Infusion site mass [Unknown]

NARRATIVE: CASE EVENT DATE: 20220301
